FAERS Safety Report 8711088 (Version 3)
Quarter: 2012Q4

REPORT INFORMATION
  Report Type: 
  Country: GB (occurrence: GB)
  Receive Date: 20120807
  Receipt Date: 20121109
  Transmission Date: 20130627
  Serious: Yes (Life-Threatening, Hospitalization, Other)
  Sender: FDA-Public Use
  Company Number: GB-AMGEN-GBRNI2012047501

PATIENT
  Age: 64 Year
  Sex: Male
  Weight: 83.3 kg

DRUGS (15)
  1. DARBEPOETIN ALFA [Suspect]
     Indication: NEPHROGENIC ANAEMIA
     Dosage: 60 mug, qwk
     Route: 058
     Dates: start: 20111229
  2. BISOPROLOL [Concomitant]
     Dosage: 10 mg, UNK
     Dates: start: 20101201
  3. ASPIRIN [Concomitant]
     Dosage: 75 mg, UNK
     Dates: start: 20100629, end: 20120625
  4. ALFACALCIDOL [Concomitant]
     Dosage: 1 mug, UNK
     Dates: start: 20100629, end: 20120221
  5. PAREGORIC [Concomitant]
     Dosage: 4 mg, UNK
     Dates: start: 20100823
  6. ASCORBIC ACID [Concomitant]
     Dosage: 100 mg, UNK
     Dates: start: 20100629
  7. NIACIN [Concomitant]
     Dosage: UNK
     Dates: start: 20100629
  8. NITROGLYCERIN [Concomitant]
     Dosage: UNK
     Dates: start: 20101019
  9. FOLIC ACID [Concomitant]
     Dosage: 5 mg, UNK
     Dates: start: 20100629
  10. DIPROBASE [Concomitant]
     Dosage: UNK UNK, prn
     Dates: start: 20041201
  11. MULTIVITAMIN [Concomitant]
     Dosage: UNK
     Dates: start: 20100629
  12. PERINDOPRIL [Concomitant]
     Dosage: 4 mg, UNK
     Dates: start: 20100823, end: 20120623
  13. VITAMIN B3 [Concomitant]
     Dosage: 1 UNK, UNK
     Dates: start: 20100629
  14. PROPAVAN [Concomitant]
     Dosage: 75 mg, UNK
     Dates: start: 20100625, end: 20120629
  15. LORAZEPAM [Concomitant]
     Dosage: 1 mg, UNK
     Dates: start: 20120227, end: 20120628

REACTIONS (7)
  - Arteriovenous fistula site infection [Unknown]
  - Arteriovenous fistula thrombosis [Unknown]
  - Atrial fibrillation [Recovered/Resolved with Sequelae]
  - Gastrointestinal haemorrhage [Recovered/Resolved]
  - Gastrointestinal ulcer [Recovered/Resolved]
  - Bacteraemia [Recovered/Resolved with Sequelae]
  - Staphylococcal bacteraemia [Recovered/Resolved]
